FAERS Safety Report 21686061 (Version 4)
Quarter: 2023Q1

REPORT INFORMATION
  Report Type: Other
  Country: KR (occurrence: None)
  Receive Date: 20221206
  Receipt Date: 20230321
  Transmission Date: 20230418
  Serious: Yes (Hospitalization, Other)
  Sender: FDA-Public Use
  Company Number: KR-ROCHE-3230747

PATIENT
  Age: 78 Year
  Sex: Male
  Weight: 83 kg

DRUGS (20)
  1. PERTUZUMAB [Suspect]
     Active Substance: PERTUZUMAB
     Indication: Anal cancer
     Route: 042
     Dates: start: 20221102, end: 20221102
  2. PERTUZUMAB [Suspect]
     Active Substance: PERTUZUMAB
     Route: 042
     Dates: start: 20221123, end: 20221123
  3. PERTUZUMAB [Suspect]
     Active Substance: PERTUZUMAB
     Route: 042
     Dates: start: 20221214, end: 20221214
  4. PERTUZUMAB [Suspect]
     Active Substance: PERTUZUMAB
     Route: 042
     Dates: start: 20230104, end: 20230104
  5. PERTUZUMAB [Suspect]
     Active Substance: PERTUZUMAB
     Route: 042
     Dates: start: 20230221, end: 20230221
  6. TRASTUZUMAB [Suspect]
     Active Substance: TRASTUZUMAB
     Indication: Anal cancer
     Route: 042
     Dates: start: 20221102, end: 20221102
  7. TRASTUZUMAB [Suspect]
     Active Substance: TRASTUZUMAB
     Route: 042
     Dates: start: 20221123, end: 20221123
  8. TRASTUZUMAB [Suspect]
     Active Substance: TRASTUZUMAB
     Route: 042
     Dates: start: 20221214, end: 20221214
  9. TRASTUZUMAB [Suspect]
     Active Substance: TRASTUZUMAB
     Route: 042
     Dates: start: 20230104, end: 20230104
  10. TRASTUZUMAB [Suspect]
     Active Substance: TRASTUZUMAB
     Route: 042
     Dates: start: 20230221, end: 20230221
  11. RENALMIN [Concomitant]
     Route: 048
     Dates: start: 20210625
  12. FELODIPINE [Concomitant]
     Active Substance: FELODIPINE
     Route: 048
     Dates: start: 20220629
  13. MICARDIS [Concomitant]
     Active Substance: TELMISARTAN
     Route: 048
     Dates: start: 20220423
  14. MUCOSTA SR [Concomitant]
     Indication: Prophylaxis
     Route: 048
     Dates: start: 20220629
  15. PROPRANOLOL HYDROCHLORIDE [Concomitant]
     Active Substance: PROPRANOLOL HYDROCHLORIDE
     Route: 048
     Dates: start: 20210625
  16. NEPHRO [Concomitant]
     Route: 048
     Dates: start: 20220413
  17. DULACKHAN EASY [Concomitant]
     Indication: Prophylaxis
     Route: 048
     Dates: start: 20220420
  18. MAGNESIUM HYDROXIDE [Concomitant]
     Active Substance: MAGNESIUM HYDROXIDE
     Indication: Prophylaxis
     Route: 048
     Dates: start: 20220727
  19. CALCIUM POLYSTYRENE SULFONATE [Concomitant]
     Active Substance: CALCIUM POLYSTYRENE SULFONATE
     Route: 048
     Dates: start: 20230114, end: 20230118
  20. ESROBAN [Concomitant]
     Route: 061
     Dates: start: 20230118

REACTIONS (3)
  - Pneumonia [Recovered/Resolved]
  - Deep vein thrombosis [Not Recovered/Not Resolved]
  - Dyspnoea [Not Recovered/Not Resolved]

NARRATIVE: CASE EVENT DATE: 20221116
